FAERS Safety Report 16404290 (Version 4)
Quarter: 2021Q2

REPORT INFORMATION
  Report Type: Spontaneous
  Country: US (occurrence: US)
  Receive Date: 20190607
  Receipt Date: 20210623
  Transmission Date: 20210716
  Serious: Yes (Hospitalization, Other)
  Sender: FDA-Public Use
  Company Number: US-PFIZER INC-2019003526

PATIENT
  Age: 59 Year
  Sex: Male
  Weight: 102 kg

DRUGS (6)
  1. RAPAMUNE [Suspect]
     Active Substance: SIROLIMUS
     Indication: KIDNEY TRANSPLANT REJECTION
     Dosage: 5 MG, DAILY
     Route: 048
     Dates: start: 2001
  2. RAPAMUNE [Suspect]
     Active Substance: SIROLIMUS
     Dosage: 5 MG, DAILY
     Route: 048
  3. RAPAMUNE [Suspect]
     Active Substance: SIROLIMUS
     Dosage: 4 MG, DAILY
     Route: 048
  4. CELLCEPT [Concomitant]
     Active Substance: MYCOPHENOLATE MOFETIL\MYCOPHENOLATE MOFETIL HYDROCHLORIDE
     Indication: KIDNEY TRANSPLANT REJECTION
     Dosage: 250 MG, 2X/DAY
     Dates: start: 2001
  5. RAPAMUNE [Suspect]
     Active Substance: SIROLIMUS
     Indication: RENAL TRANSPLANT
     Dosage: 0.5 MG, DAILY
     Route: 048
  6. PREDNISONE. [Concomitant]
     Active Substance: PREDNISONE
     Indication: KIDNEY TRANSPLANT REJECTION
     Dosage: 5 MG, DAILY
     Dates: start: 2001

REACTIONS (8)
  - Product prescribing error [Unknown]
  - Weight decreased [Not Recovered/Not Resolved]
  - Incorrect dose administered [Unknown]
  - Fluid retention [Not Recovered/Not Resolved]
  - Product dispensing error [Unknown]
  - Haemorrhage [Recovered/Resolved]
  - Laboratory test abnormal [Unknown]
  - Eye disorder [Unknown]
